FAERS Safety Report 6279061-3 (Version None)
Quarter: 2009Q3

REPORT INFORMATION
  Report Type: 
  Country: None (occurrence: None)
  Receive Date: 20090723
  Receipt Date: 20090720
  Transmission Date: 20100115
  Serious: Yes (Other)
  Sender: FDA-Public Use
  Company Number: DK-BAYER-200925887GPV

PATIENT
  Age: 37 Year
  Sex: Female

DRUGS (1)
  1. MIRENA [Suspect]
     Indication: CONTRACEPTION
     Route: 015
     Dates: start: 20090320

REACTIONS (4)
  - LOSS OF LIBIDO [None]
  - MENIERE'S DISEASE [None]
  - OEDEMA PERIPHERAL [None]
  - PAROSMIA [None]
